FAERS Safety Report 20176163 (Version 1)
Quarter: 2021Q4

REPORT INFORMATION
  Report Type: Other
  Country: US (occurrence: None)
  Receive Date: 20211213
  Receipt Date: 20211213
  Transmission Date: 20220303
  Serious: Yes (Other)
  Sender: FDA-Public Use
  Company Number: US-ROCHE-2972653

PATIENT
  Sex: Female

DRUGS (1)
  1. OCREVUS [Suspect]
     Active Substance: OCRELIZUMAB
     Indication: Relapsing multiple sclerosis
     Dosage: PREVIOUS DATE OF TREATMENT: 05/JUN/2020, ANTICIPATED DOT: 07/DEC/2020
     Route: 042

REACTIONS (1)
  - Pneumonia [Unknown]
